FAERS Safety Report 9709935 (Version 5)
Quarter: 2013Q4

REPORT INFORMATION
  Report Type: Spontaneous
  Country: US (occurrence: US)
  Receive Date: 20131126
  Receipt Date: 20131217
  Transmission Date: 20140711
  Serious: Yes (Life-Threatening)
  Sender: FDA-Public Use
  Company Number: US-JNJFOC-20131114845

PATIENT
  Age: 74 Year
  Sex: Male
  Weight: 95 kg

DRUGS (12)
  1. XARELTO [Suspect]
     Indication: CEREBROVASCULAR ACCIDENT PROPHYLAXIS
     Route: 048
     Dates: start: 20130301, end: 20130522
  2. XARELTO [Suspect]
     Indication: ATRIAL FIBRILLATION
     Route: 048
     Dates: start: 20130301, end: 20130522
  3. DILTIAZEM [Concomitant]
     Route: 065
  4. DRONEDARONE [Concomitant]
     Route: 065
  5. NAPROXEN [Concomitant]
     Route: 065
  6. ASPIRIN [Concomitant]
     Route: 065
  7. VITAMIN B [Concomitant]
     Route: 065
  8. ANDROGEL [Concomitant]
     Route: 065
  9. ATORVASTATIN [Concomitant]
     Route: 065
  10. CALCITRIOL [Concomitant]
     Route: 065
  11. CALCIUM CITRATE [Concomitant]
     Route: 065
  12. OCUVITE LUTEIN [Concomitant]
     Dosage: 1 CAP DAILY
     Route: 065

REACTIONS (5)
  - Atrial fibrillation [Unknown]
  - Cardiac tamponade [Unknown]
  - Pericardial effusion [Unknown]
  - Pericarditis [Unknown]
  - Atrial flutter [Unknown]
